FAERS Safety Report 15835430 (Version 3)
Quarter: 2019Q4

REPORT INFORMATION
  Report Type: Report from Study
  Country: US (occurrence: US)
  Receive Date: 20190117
  Receipt Date: 20191210
  Transmission Date: 20200122
  Serious: No
  Sender: FDA-Public Use
  Company Number: US-009507513-1901USA002836

PATIENT
  Age: 60 Year
  Sex: Male

DRUGS (10)
  1. PAXIL [Concomitant]
     Active Substance: PAROXETINE HYDROCHLORIDE
  2. ASMANEX [Suspect]
     Active Substance: MOMETASONE FUROATE
     Dosage: 60 DOSES, 2 PUFFS A DAY, 2 TIMES PER DAY
     Route: 055
  3. ASMANEX [Suspect]
     Active Substance: MOMETASONE FUROATE
     Indication: ASTHMA
     Dosage: 60 DOSES, 2 PUFFS A DAY, 2 TIMES PER DAY
     Route: 055
     Dates: start: 2013
  4. ASMANEX [Suspect]
     Active Substance: MOMETASONE FUROATE
     Dosage: 1 PUFF ORALLY DAILY
     Route: 055
  5. ASMANEX HFA [Suspect]
     Active Substance: MOMETASONE FUROATE
  6. ASMANEX [Suspect]
     Active Substance: MOMETASONE FUROATE
     Dosage: 1 PUFF ONCE DAILY
  7. ASMANEX [Suspect]
     Active Substance: MOMETASONE FUROATE
     Dosage: 1 PUFF ONCE DAILY
     Route: 055
  8. ASMANEX [Suspect]
     Active Substance: MOMETASONE FUROATE
     Dosage: UNK
  9. ASMANEX [Suspect]
     Active Substance: MOMETASONE FUROATE
     Dosage: 1 PUFF ORALLY DAILY
     Route: 055
  10. CLONAZEPAM. [Concomitant]
     Active Substance: CLONAZEPAM

REACTIONS (6)
  - Product quality issue [Unknown]
  - Poor quality device used [Unknown]
  - Product dose omission [Unknown]
  - Cough [Recovering/Resolving]
  - Product quality issue [Unknown]
  - Product quality issue [Unknown]

NARRATIVE: CASE EVENT DATE: 20191002
